FAERS Safety Report 13499544 (Version 1)
Quarter: 2017Q2

REPORT INFORMATION
  Report Type: Spontaneous
  Country: US (occurrence: US)
  Receive Date: 20170501
  Receipt Date: 20170501
  Transmission Date: 20170830
  Serious: No
  Sender: FDA-Public Use
  Company Number: US-BAUSCH-BL-2017-005711

PATIENT
  Age: 30 Year
  Sex: Female

DRUGS (3)
  1. UCERIS [Suspect]
     Active Substance: BUDESONIDE
     Route: 054
     Dates: end: 2015
  2. LIALDA [Concomitant]
     Active Substance: MESALAMINE
     Indication: COLITIS ULCERATIVE
     Route: 048
  3. UCERIS [Suspect]
     Active Substance: BUDESONIDE
     Indication: COLITIS ULCERATIVE
     Route: 054
     Dates: start: 201510

REACTIONS (2)
  - No adverse event [Unknown]
  - Drug administration error [Unknown]
